FAERS Safety Report 18476175 (Version 2)
Quarter: 2021Q1

REPORT INFORMATION
  Report Type: Spontaneous
  Country: US (occurrence: US)
  Receive Date: 20201107
  Receipt Date: 20210304
  Transmission Date: 20210419
  Serious: Yes (Life-Threatening, Hospitalization, Other)
  Sender: FDA-Public Use
  Company Number: US-DRREDDYS-USA/USA/20/0128822

PATIENT
  Age: 68 Year
  Sex: Male

DRUGS (1)
  1. ALLOPURINOL. [Suspect]
     Active Substance: ALLOPURINOL
     Indication: PRODUCT USED FOR UNKNOWN INDICATION

REACTIONS (8)
  - Drug reaction with eosinophilia and systemic symptoms [Recovered/Resolved]
  - Pancytopenia [Unknown]
  - Encephalopathy [Unknown]
  - Hypothermia [Unknown]
  - Human herpesvirus 6 infection reactivation [Not Recovered/Not Resolved]
  - Transaminases increased [Unknown]
  - Drug hypersensitivity [Recovered/Resolved]
  - Renal failure [Not Recovered/Not Resolved]
